FAERS Safety Report 8241314 (Version 4)
Quarter: 2012Q4

REPORT INFORMATION
  Report Type: 
  Country: US (occurrence: US)
  Receive Date: 20111111
  Receipt Date: 20121213
  Transmission Date: 20130627
  Serious: Yes (Death, Other)
  Sender: FDA-Public Use
  Company Number: US-BAYER-2011-107570

PATIENT
  Age: 72 Year
  Sex: Male
  Weight: 77 kg

DRUGS (29)
  1. AMIODARONE [Concomitant]
     Dosage: 300mg
     Route: 042
     Dates: start: 20031226, end: 20031226
  2. ATENOLOL [Concomitant]
  3. DESFLURANE [Concomitant]
     Dosage: UNK
     Dates: start: 20031226, end: 20031226
  4. VERSED [Concomitant]
     Dosage: UNK
     Dates: start: 20031226, end: 20031226
  5. FENTANYL [Concomitant]
     Dosage: UNK
     Dates: start: 20031226, end: 20031226
  6. PROPOFOL [Concomitant]
     Dosage: UNK
     Dates: start: 20031226, end: 20031226
  7. VECURONIUM [Concomitant]
     Dosage: UNK
     Dates: start: 20031226, end: 20031226
  8. SUCCINYLCHOLINE CHLORIDE [Concomitant]
     Dosage: UNK
     Dates: start: 20031226, end: 20031226
  9. DECADRON [Concomitant]
     Dosage: 10mg
     Dates: start: 20031226, end: 20031226
  10. LASIX [Concomitant]
     Dosage: 40mg
     Dates: start: 20031226, end: 20031226
  11. LASIX [Concomitant]
     Dosage: Cardiopulmonary bypass prime
     Dates: start: 20031226, end: 20031226
  12. PEPCID [Concomitant]
     Dosage: 20mg
     Dates: start: 20031226, end: 20031226
  13. ANCEF [Concomitant]
     Dosage: 1 gram
     Dates: start: 20031226, end: 20031226
  14. PROTAMINE [Concomitant]
     Dosage: 500mg
     Dates: start: 20031226, end: 20031226
  15. PHENYLEPHRINE [Concomitant]
     Dosage: UNK
     Dates: start: 20031226
  16. DOPAMINE [Concomitant]
     Dosage: UNK
     Dates: start: 20031226
  17. DOBUTAMINE [Concomitant]
     Dosage: UNK
     Dates: start: 20031226
  18. NITROGLYCERIN [Concomitant]
     Dosage: UNK
     Dates: start: 20031226
  19. MANNITOL [Concomitant]
     Dosage: 12.5 gram
     Dates: start: 20031226, end: 20031226
  20. MANNITOL [Concomitant]
     Dosage: Cardiopulmonary bypass prime
     Dates: start: 20031226, end: 20031226
  21. MAGNESIUM SULFATE [Concomitant]
     Dosage: 2 gram
     Dates: start: 20031226, end: 20031226
  22. MAGNESIUM SULFATE [Concomitant]
     Dosage: Cardiopulmonary bypass prime
     Dates: start: 20031226, end: 20031226
  23. LIDOCAINE [Concomitant]
     Dosage: 100mg
     Dates: start: 20031226, end: 20031226
  24. CALCIUM CHLORIDE [Concomitant]
     Dosage: 1 gram
     Dates: start: 20031226, end: 20031226
  25. SODIUM BICARBONATE [Concomitant]
     Dosage: 1meq
     Dates: start: 20031226, end: 20031226
  26. HEPARIN [Concomitant]
     Dosage: 40,000 units
     Dates: start: 20031226, end: 20031226
  27. HEPARIN [Concomitant]
     Dosage: Cardiopulmonary bypass prime
     Dates: start: 20031226, end: 20031226
  28. TRASYLOL [Suspect]
     Indication: CABG
     Dosage: Test dose: none; 200mL pump prime
     Route: 042
     Dates: start: 20031226, end: 20031226
  29. TRASYLOL [Suspect]
     Indication: CABG
     Dosage: Loading dose: 200mL followed by 50mL/hr infusion

REACTIONS (3)
  - Death [Fatal]
  - Renal failure acute [None]
  - Injury [Unknown]
